FAERS Safety Report 6902492-2 (Version None)
Quarter: 2010Q3

REPORT INFORMATION
  Report Type: 
  Country: None (occurrence: None)
  Receive Date: 20100802
  Receipt Date: 20100802
  Transmission Date: 20110219
  Serious: No
  Sender: FDA-Public Use
  Company Number: None

PATIENT
  Age: 57 Year
  Sex: Male
  Weight: 77.1115 kg

DRUGS (1)
  1. ALLI [Suspect]
     Indication: WEIGHT CONTROL

REACTIONS (1)
  - COLON CANCER [None]
